FAERS Safety Report 21233923 (Version 2)
Quarter: 2022Q3

REPORT INFORMATION
  Report Type: Spontaneous
  Country: MX (occurrence: MX)
  Receive Date: 20220819
  Receipt Date: 20220913
  Transmission Date: 20221027
  Serious: Yes (Hospitalization)
  Sender: FDA-Public Use
  Company Number: MX-BAYER-2022P011509

PATIENT
  Age: 57 Year
  Sex: Male

DRUGS (1)
  1. VITRAKVI [Suspect]
     Active Substance: LAROTRECTINIB
     Indication: Sarcoma
     Dosage: 100 MG, BID
     Route: 048
     Dates: start: 20220317, end: 20220816

REACTIONS (3)
  - Sarcoma [Not Recovered/Not Resolved]
  - Pain [None]
  - Pruritus [None]

NARRATIVE: CASE EVENT DATE: 20220801
